FAERS Safety Report 4906404-2 (Version None)
Quarter: 2006Q1

REPORT INFORMATION
  Report Type: 
  Country: None (occurrence: None)
  Receive Date: 20060209
  Receipt Date: 20060127
  Transmission Date: 20060701
  Serious: Yes (Hospitalization)
  Sender: FDA-Public Use
  Company Number: FR-GLAXOSMITHKLINE-B0408299A

PATIENT
  Age: 52 Year
  Sex: Female
  Weight: 73 kg

DRUGS (17)
  1. ZYLORIC [Suspect]
     Dosage: 300MG PER DAY
     Route: 048
     Dates: start: 20051206, end: 20051226
  2. PROZAC [Suspect]
     Route: 048
     Dates: end: 20051226
  3. RIMIFON [Suspect]
     Dosage: 200MG PER DAY
     Route: 048
     Dates: start: 20051206, end: 20051226
  4. NICOPATCH [Suspect]
     Route: 062
     Dates: start: 20051206, end: 20051226
  5. MOPRAL [Concomitant]
     Route: 065
     Dates: start: 20051206
  6. XANAX [Concomitant]
     Dosage: .5MG PER DAY
     Route: 065
     Dates: start: 20051206
  7. FOLINATE DE CALCIUM [Concomitant]
     Route: 065
     Dates: start: 20051206
  8. IMOVANE [Concomitant]
     Dosage: 1UNIT PER DAY
     Route: 065
     Dates: start: 20051206
  9. SKENAN [Concomitant]
     Indication: BONE PAIN
     Route: 065
     Dates: start: 20051206
  10. MORPHINE SULFATE [Concomitant]
     Indication: BONE PAIN
     Route: 065
     Dates: start: 20051206
  11. DOXORUBICIN HCL [Concomitant]
     Dosage: 20MG PER DAY
     Route: 065
     Dates: start: 20051215, end: 20051218
  12. VINCRISTINE [Concomitant]
     Dosage: .4MG PER DAY
     Route: 065
     Dates: start: 20051215, end: 20051218
  13. SOLUDECADRON [Concomitant]
     Dosage: 40MG PER DAY
     Route: 065
     Dates: start: 20051215, end: 20051218
  14. ZOPHREN [Concomitant]
     Indication: VOMITING
     Dosage: 2AMP PER DAY
     Dates: start: 20051215, end: 20051218
  15. ZOMETA [Concomitant]
     Route: 042
     Dates: start: 20051225
  16. ZOVIRAX [Concomitant]
     Dosage: 750UNIT THREE TIMES PER DAY
     Route: 065
     Dates: start: 20051206
  17. BACTRIM [Concomitant]
     Dosage: 1TAB PER DAY
     Route: 048
     Dates: start: 20051206

REACTIONS (26)
  - ABDOMINAL PAIN [None]
  - ALANINE AMINOTRANSFERASE INCREASED [None]
  - ANXIETY [None]
  - ASPARTATE AMINOTRANSFERASE INCREASED [None]
  - BLOOD CREATININE INCREASED [None]
  - CONFUSIONAL STATE [None]
  - COUGH [None]
  - DYSPNOEA [None]
  - EPISTAXIS [None]
  - ERYTHEMA [None]
  - FACE OEDEMA [None]
  - GAMMA-GLUTAMYLTRANSFERASE INCREASED [None]
  - HALLUCINATION [None]
  - HYPERCREATININAEMIA [None]
  - HYPONATRAEMIA [None]
  - HYPOXIA [None]
  - INTERSTITIAL LUNG DISEASE [None]
  - LEUKOCYTOSIS [None]
  - LUNG DISORDER [None]
  - MEMORY IMPAIRMENT [None]
  - MUSCLE ENZYME INCREASED [None]
  - OEDEMA PERIPHERAL [None]
  - PLEURAL EFFUSION [None]
  - PYREXIA [None]
  - RHABDOMYOLYSIS [None]
  - TRANSAMINASES INCREASED [None]
